FAERS Safety Report 20723350 (Version 1)
Quarter: 2022Q2

REPORT INFORMATION
  Report Type: Spontaneous
  Country: CN (occurrence: CN)
  Receive Date: 20220419
  Receipt Date: 20220419
  Transmission Date: 20220721
  Serious: Yes (Death, Life-Threatening, Hospitalization, Other)
  Sender: FDA-Public Use
  Company Number: CN-AMGEN-CHNSP2022065766

PATIENT

DRUGS (1)
  1. FILGRASTIM [Suspect]
     Active Substance: FILGRASTIM
     Indication: Prophylaxis
     Dosage: 5-10 (G/KG BODY WEIGHT) DOSE
     Route: 065

REACTIONS (12)
  - Transplantation complication [Fatal]
  - Acute myeloid leukaemia [Fatal]
  - Toxicity to various agents [Unknown]
  - Febrile neutropenia [Unknown]
  - Infection [Unknown]
  - Cytopenia [Unknown]
  - Pneumonia [Unknown]
  - Sepsis [Unknown]
  - Thrombocytopenia [Unknown]
  - Therapy non-responder [Unknown]
  - Fatigue [Unknown]
  - Nausea [Unknown]
